FAERS Safety Report 9112508 (Version 1)
Quarter: 2013Q1

REPORT INFORMATION
  Report Type: Spontaneous
  Country: US (occurrence: US)
  Receive Date: 20130211
  Receipt Date: 20130211
  Transmission Date: 20140127
  Serious: Yes (Other)
  Sender: FDA-Public Use
  Company Number: PHEH2013US002898

PATIENT
  Sex: Female

DRUGS (6)
  1. FEMARA [Suspect]
     Indication: BREAST CANCER
     Dosage: UNK UKN, UNK
  2. RECLAST [Suspect]
     Dosage: UNK UKN, UNK
     Route: 042
  3. METORPOLOLTARTRAAT A [Concomitant]
     Dosage: UNK UKN, UNK
  4. XANAX [Concomitant]
     Dosage: UNK UKN, UNK
  5. CALCIUM [Concomitant]
     Dosage: 1500 IU, UNK
  6. VITAMIN D [Concomitant]
     Dosage: UNK UKN, UNK

REACTIONS (4)
  - Nodule [Unknown]
  - Bone disorder [Unknown]
  - Nasopharyngitis [Unknown]
  - Red blood cell count abnormal [Unknown]
